FAERS Safety Report 7031656-5 (Version None)
Quarter: 2010Q4

REPORT INFORMATION
  Report Type: 
  Country: None (occurrence: None)
  Receive Date: 20101006
  Receipt Date: 20101006
  Transmission Date: 20110411
  Serious: No
  Sender: FDA-Public Use
  Company Number: None

PATIENT
  Age: 70 Year
  Sex: Male
  Weight: 98.4306 kg

DRUGS (1)
  1. VYTORIN [Suspect]

REACTIONS (2)
  - MUSCLE DISORDER [None]
  - PAIN [None]
